FAERS Safety Report 20435617 (Version 1)
Quarter: 2022Q1

REPORT INFORMATION
  Report Type: Report from Study
  Country: US (occurrence: US)
  Receive Date: 20220207
  Receipt Date: 20220207
  Transmission Date: 20220423
  Serious: Yes (Other)
  Sender: FDA-Public Use
  Company Number: US-ABBVIE-22P-163-4260827-00

PATIENT
  Age: 66 Year
  Sex: Male

DRUGS (1)
  1. VENCLEXTA [Suspect]
     Active Substance: VENETOCLAX
     Indication: Diffuse large B-cell lymphoma
     Dosage: PILLS
     Route: 048
     Dates: start: 20220125

REACTIONS (5)
  - Terminal state [Unknown]
  - Diffuse large B-cell lymphoma [Unknown]
  - Off label use [Unknown]
  - Throat tightness [Unknown]
  - Off label use [Unknown]

NARRATIVE: CASE EVENT DATE: 20220101
